FAERS Safety Report 15828271 (Version 2)
Quarter: 2020Q1

REPORT INFORMATION
  Report Type: Spontaneous
  Country: US (occurrence: US)
  Receive Date: 20190115
  Receipt Date: 20200122
  Transmission Date: 20200409
  Serious: No
  Sender: FDA-Public Use
  Company Number: US-ALLERGAN-1817113US

PATIENT
  Sex: Female

DRUGS (6)
  1. COMBIGAN [Interacting]
     Active Substance: BRIMONIDINE TARTRATE\TIMOLOL MALEATE
     Indication: GLAUCOMA
     Dosage: UNK
     Route: 047
  2. RESTASIS [Interacting]
     Active Substance: CYCLOSPORINE
     Dosage: UNK, QPM
     Route: 047
     Dates: start: 201712
  3. RESTASIS [Suspect]
     Active Substance: CYCLOSPORINE
     Indication: DRY EYE
     Dosage: 2 GTT, BID
     Route: 047
     Dates: start: 20181114
  4. REFRESH LIQUIGEL [Suspect]
     Active Substance: CARBOXYMETHYLCELLULOSE SODIUM
     Indication: DRY EYE
     Dosage: UNK
     Route: 047
  5. TRAVATAN Z [Concomitant]
     Active Substance: TRAVOPROST
     Dosage: UNK
  6. SYSTANE BALANCE [Suspect]
     Active Substance: PROPYLENE GLYCOL
     Indication: PRODUCT USED FOR UNKNOWN INDICATION
     Dosage: UNK
     Route: 047

REACTIONS (12)
  - Inappropriate schedule of product administration [Unknown]
  - Product storage error [Unknown]
  - Erythema of eyelid [Recovering/Resolving]
  - Eye pruritus [Unknown]
  - Ocular hyperaemia [Unknown]
  - Drug ineffective [Unknown]
  - Eyelid pain [Recovering/Resolving]
  - Multiple use of single-use product [Unknown]
  - Foreign body sensation in eyes [Unknown]
  - Eyelid irritation [Recovering/Resolving]
  - Eye irritation [Unknown]
  - Swelling of eyelid [Recovering/Resolving]
